FAERS Safety Report 7091268-4 (Version None)
Quarter: 2010Q4

REPORT INFORMATION
  Report Type: 
  Country: None (occurrence: None)
  Receive Date: 20101109
  Receipt Date: 20101104
  Transmission Date: 20110411
  Serious: No
  Sender: FDA-Public Use
  Company Number: US-ROXANE LABORATORIES, INC.-2010-RO-01461RO

PATIENT
  Sex: Male

DRUGS (5)
  1. MORPHINE [Suspect]
     Dosage: 240 MG
  2. MORPHINE [Suspect]
     Dosage: 30 MG
  3. PREDNISONE [Suspect]
  4. JEVTANA KIT [Suspect]
  5. NEULASTA [Suspect]

REACTIONS (2)
  - DIARRHOEA [None]
  - NAUSEA [None]
